FAERS Safety Report 7630965-6 (Version None)
Quarter: 2011Q3

REPORT INFORMATION
  Report Type: 
  Country: None (occurrence: None)
  Receive Date: 20110725
  Receipt Date: 20110715
  Transmission Date: 20111222
  Serious: Yes (Hospitalization)
  Sender: FDA-Public Use
  Company Number: US-BIOGENIDEC-2010BI021500

PATIENT
  Age: 70 Year
  Sex: Female

DRUGS (3)
  1. SLEEPING PILLS (NOS) [Concomitant]
     Dates: start: 20100506, end: 20100508
  2. AVONEX [Suspect]
     Indication: MULTIPLE SCLEROSIS
     Route: 030
     Dates: start: 19980510
  3. BLOOD PRESSURE MEDICATION (NOS) [Concomitant]

REACTIONS (4)
  - GAIT DISTURBANCE [None]
  - WRONG DRUG ADMINISTERED [None]
  - CONVULSION [None]
  - FALL [None]
